FAERS Safety Report 18551107 (Version 3)
Quarter: 2020Q4

REPORT INFORMATION
  Report Type: Report from Study
  Country: BR (occurrence: BR)
  Receive Date: 20201126
  Receipt Date: 20201209
  Transmission Date: 20210114
  Serious: Yes (Life-Threatening, Other)
  Sender: FDA-Public Use
  Company Number: NVSC2020BR316071

PATIENT
  Age: 82 Year
  Sex: Female
  Weight: 62 kg

DRUGS (6)
  1. ATENOLOL SANDOZ [Concomitant]
     Active Substance: ATENOLOL
     Indication: CARDIAC DISORDER
     Dosage: 1 DF, BID (STARTED 2 YEARS AGO)
     Route: 048
  2. DIOVAN AMLO FIX [Suspect]
     Active Substance: AMLODIPINE\VALSARTAN
     Indication: ARRHYTHMIA
     Dosage: 1 DF, BID (1 IN THE MORNING AND 1 AT NIGHT) (STARTED APPROX 6 YEARS AGO AND STOPPED 3 YEARS AGO)
     Route: 048
  3. ALPRAZOLAM. [Concomitant]
     Active Substance: ALPRAZOLAM
     Indication: SLEEP DISORDER
     Dosage: 1 DF (USED SOMETIMES) 2 YEARS AGO
     Route: 048
  4. DIOVAN AMLO FIX [Suspect]
     Active Substance: AMLODIPINE\VALSARTAN
     Indication: CARDIAC DISORDER
     Dosage: 1 DF, BID (1 IN THE MORNING AND 1 AT NIGHT)
     Route: 048
     Dates: start: 2014
  5. DIOVAN AMLO FIX [Suspect]
     Active Substance: AMLODIPINE\VALSARTAN
     Dosage: 1 DF, BID (1 IN MORNING AND 1 AT NIGHT)
     Route: 048
     Dates: start: 202009
  6. ATENOLOL SANDOZ [Concomitant]
     Active Substance: ATENOLOL
     Indication: ARRHYTHMIA

REACTIONS (11)
  - Arthralgia [Not Recovered/Not Resolved]
  - Blood cholesterol increased [Recovered/Resolved]
  - Depressed mood [Recovered/Resolved]
  - Near death experience [Recovered/Resolved]
  - Fibromyalgia [Not Recovered/Not Resolved]
  - Blood pressure increased [Recovered/Resolved]
  - Hypokinesia [Recovered/Resolved]
  - Osteoporosis [Not Recovered/Not Resolved]
  - Pain [Not Recovered/Not Resolved]
  - Product use in unapproved indication [Unknown]
  - Blood pressure abnormal [Recovered/Resolved]

NARRATIVE: CASE EVENT DATE: 202009
